FAERS Safety Report 24422186 (Version 1)
Quarter: 2024Q4

REPORT INFORMATION
  Report Type: Spontaneous
  Country: CA (occurrence: CA)
  Receive Date: 20241010
  Receipt Date: 20241010
  Transmission Date: 20250114
  Serious: Yes (Other)
  Sender: AMGEN
  Company Number: CA-AMGEN-CANSP2024199548

PATIENT
  Age: 49 Year
  Sex: Female

DRUGS (1)
  1. ENBREL [Suspect]
     Active Substance: ETANERCEPT
     Indication: Rheumatoid arthritis
     Dosage: 50 MILLIGRAM, QWK (UNSPECIFIED SOLUTION SUBCUTANEOUS)
     Route: 058

REACTIONS (2)
  - Breast cancer [Not Recovered/Not Resolved]
  - Therapy change [Not Recovered/Not Resolved]
